FAERS Safety Report 9364234 (Version 1)
Quarter: 2013Q2

REPORT INFORMATION
  Report Type: Spontaneous
  Country: US (occurrence: None)
  Receive Date: 20130619
  Receipt Date: 20130619
  Transmission Date: 20140414
  Serious: Yes (Hospitalization)
  Sender: FDA-Public Use
  Company Number: TIR-02196

PATIENT
  Age: 23 Month
  Sex: Female

DRUGS (1)
  1. LEVOTHYROXINE [Suspect]
     Dosage: 1200 UG, SINGLE, ORAL
     Route: 048

REACTIONS (4)
  - Hyperthyroidism [None]
  - Overdose [None]
  - Blood pressure decreased [None]
  - Heart rate increased [None]
